FAERS Safety Report 8462485-3 (Version None)
Quarter: 2012Q2

REPORT INFORMATION
  Report Type: 
  Country: None (occurrence: None)
  Receive Date: 20120625
  Receipt Date: 20120613
  Transmission Date: 20120825
  Serious: Yes (Other)
  Sender: FDA-Public Use
  Company Number: US-ELI_LILLY_AND_COMPANY-US201103005813

PATIENT
  Sex: Female

DRUGS (2)
  1. FORTEO [Suspect]
     Indication: OSTEOPOROSIS
     Dosage: 20 UG, QD
     Route: 065
     Dates: start: 20110101
  2. FORTEO [Suspect]
     Dosage: 20 MG, QD
     Dates: end: 20120401

REACTIONS (13)
  - COUGH [None]
  - BRONCHITIS [None]
  - VASCULAR INJURY [None]
  - SPINAL COLUMN STENOSIS [None]
  - INTERVERTEBRAL DISC PROTRUSION [None]
  - DYSPHONIA [None]
  - INJECTION SITE PAIN [None]
  - HAEMORRHAGE SUBCUTANEOUS [None]
  - BACK PAIN [None]
  - NASOPHARYNGITIS [None]
  - NECK PAIN [None]
  - INJECTION SITE HAEMATOMA [None]
  - UPPER RESPIRATORY TRACT INFECTION [None]
